FAERS Safety Report 8886236 (Version 1)
Quarter: 2012Q4

REPORT INFORMATION
  Report Type: 
  Country: US (occurrence: US)
  Receive Date: 20121105
  Receipt Date: 20121105
  Transmission Date: 20130627
  Serious: Yes (Hospitalization, Other)
  Sender: FDA-Public Use
  Company Number: US-ASTRAZENECA-2012SE81857

PATIENT
  Sex: Male

DRUGS (3)
  1. BRILINTA [Suspect]
     Indication: ANTIPLATELET THERAPY
     Dosage: 180 MG LOADING DOSE
     Route: 048
     Dates: start: 20121018
  2. ASPIRIN [Suspect]
     Route: 048
  3. CLOPIDOGREL [Suspect]
     Route: 048

REACTIONS (2)
  - Thrombosis in device [Unknown]
  - Drug dose omission [Unknown]
